FAERS Safety Report 8573456-0 (Version None)
Quarter: 2012Q2

REPORT INFORMATION
  Report Type: 
  Country: None (occurrence: None)
  Receive Date: 20120423
  Receipt Date: 20100303
  Transmission Date: 20120825
  Serious: Yes (Death)
  Sender: FDA-Public Use
  Company Number: PHEH2009US16035

PATIENT
  Age: 86 Year
  Sex: Female
  Weight: 80.3 kg

DRUGS (9)
  1. NEXIUM [Concomitant]
  2. PREDNISONE TAB [Concomitant]
  3. EXJADE [Suspect]
     Indication: IRON OVERLOAD
     Dosage: 1500 MG, DAILY, ORAL
     Route: 048
     Dates: start: 20090829, end: 20091101
  4. TIMOPTIC (TIMOLOL MALEATE) EYE DROPS [Concomitant]
  5. FUROSEMIDE [Concomitant]
  6. GLUCOPHAGE [Concomitant]
  7. CARDURA /IRE/ (DOXAZOSIN MESILATE) [Concomitant]
  8. REMERON [Concomitant]
  9. CARTIA XT [Concomitant]

REACTIONS (4)
  - ABDOMINAL PAIN [None]
  - CYSTITIS [None]
  - NEOPLASM PROGRESSION [None]
  - DIARRHOEA [None]
